FAERS Safety Report 5255377-4 (Version None)
Quarter: 2007Q1

REPORT INFORMATION
  Report Type: 
  Country: None (occurrence: None)
  Receive Date: 20070305
  Receipt Date: 20070223
  Transmission Date: 20070707
  Serious: No
  Sender: FDA-Public Use
  Company Number: US-JNJFOC-20061204406

PATIENT
  Sex: Female
  Weight: 100.02 kg

DRUGS (1)
  1. ORTHO EVRA [Suspect]
     Indication: CONTRACEPTION
     Route: 062

REACTIONS (2)
  - ABDOMINAL PAIN [None]
  - VAGINAL HAEMORRHAGE [None]
